FAERS Safety Report 16132440 (Version 1)
Quarter: 2019Q1

REPORT INFORMATION
  Report Type: Spontaneous
  Country: US (occurrence: US)
  Receive Date: 20190226
  Receipt Date: 20190226
  Transmission Date: 20190418
  Serious: Yes (Life-Threatening)
  Sender: FDA-Public Use
  Company Number: None

PATIENT

DRUGS (1)
  1. TIZANIDINE HCL [Suspect]
     Active Substance: TIZANIDINE HYDROCHLORIDE
     Indication: MUSCLE SPASMS
     Route: 048
     Dates: end: 20190211

REACTIONS (6)
  - Blood pressure decreased [None]
  - Heart rate decreased [None]
  - Balance disorder [None]
  - Feeling abnormal [None]
  - Feeling drunk [None]
  - Bedridden [None]

NARRATIVE: CASE EVENT DATE: 201902
